FAERS Safety Report 9945334 (Version 1)
Quarter: 2014Q1

REPORT INFORMATION
  Report Type: Report from Study
  Country: US (occurrence: US)
  Receive Date: 20140303
  Receipt Date: 20140303
  Transmission Date: 20141002
  Serious: No
  Sender: FDA-Public Use
  Company Number: US-ABBVIE-13P-163-1051826-00

PATIENT
  Age: 65 Year
  Sex: Female

DRUGS (14)
  1. HUMIRA [Suspect]
     Indication: CROHN^S DISEASE
     Dates: start: 20130214, end: 20130214
  2. HUMIRA [Suspect]
  3. METFORMIN [Concomitant]
     Indication: DIABETES MELLITUS
  4. METFORMIN [Concomitant]
     Indication: DECREASED APPETITE
  5. GLIPIZIDE [Concomitant]
     Indication: DIABETES MELLITUS
  6. BALSALZIDE [Concomitant]
     Indication: CROHN^S DISEASE
  7. PRAVASTATIN [Concomitant]
     Indication: BLOOD CHOLESTEROL INCREASED
  8. HYDROCHLOROTHIAZIDE [Concomitant]
     Indication: HYPERTENSION
  9. LOSARTAN [Concomitant]
     Indication: HYPERTENSION
  10. CLONIDINE [Concomitant]
     Indication: HYPERTENSION
  11. HYDRALAZINE [Concomitant]
     Indication: HYPERTENSION
  12. ADVAIR [Concomitant]
     Indication: ASTHMA
     Route: 055
  13. TYLENOL #3 [Concomitant]
     Indication: PRODUCT USED FOR UNKNOWN INDICATION
  14. PROMETHAZINE [Concomitant]

REACTIONS (6)
  - Fatigue [Recovering/Resolving]
  - Tremor [Not Recovered/Not Resolved]
  - Feeling jittery [Not Recovered/Not Resolved]
  - Nervousness [Unknown]
  - Device malfunction [Unknown]
  - Drug dose omission [Unknown]
